FAERS Safety Report 16134212 (Version 1)
Quarter: 2019Q1

REPORT INFORMATION
  Report Type: Spontaneous
  Country: US (occurrence: US)
  Receive Date: 20190329
  Receipt Date: 20190329
  Transmission Date: 20190418
  Serious: Yes (Other)
  Sender: FDA-Public Use
  Company Number: US-PFIZER INC-2019135553

PATIENT

DRUGS (8)
  1. PRILOSEC [Suspect]
     Active Substance: OMEPRAZOLE MAGNESIUM
  2. PROTONIX [Suspect]
     Active Substance: PANTOPRAZOLE SODIUM
  3. PRILOSEC OTC [Suspect]
     Active Substance: OMEPRAZOLE MAGNESIUM
  4. NEXIUM [Suspect]
     Active Substance: ESOMEPRAZOLE MAGNESIUM
  5. NEXIUM 24HR [Suspect]
     Active Substance: ESOMEPRAZOLE MAGNESIUM
  6. PREVACID [Suspect]
     Active Substance: LANSOPRAZOLE
  7. PREVACID 24 HR [Suspect]
     Active Substance: LANSOPRAZOLE
  8. DEXILANT [Suspect]
     Active Substance: DEXLANSOPRAZOLE

REACTIONS (1)
  - Chronic kidney disease [Unknown]
